FAERS Safety Report 20491492 (Version 1)
Quarter: 2022Q1

REPORT INFORMATION
  Report Type: Spontaneous
  Country: TN (occurrence: None)
  Receive Date: 20220218
  Receipt Date: 20220218
  Transmission Date: 20220424
  Serious: Yes (Other)
  Sender: FDA-Public Use
  Company Number: TN-ROCHE-3029909

PATIENT
  Age: 49 Year
  Sex: Female

DRUGS (1)
  1. ACTEMRA [Suspect]
     Active Substance: TOCILIZUMAB
     Indication: Product used for unknown indication
     Route: 065

REACTIONS (1)
  - Hallucination, auditory [Unknown]
